FAERS Safety Report 17043799 (Version 3)
Quarter: 2020Q3

REPORT INFORMATION
  Report Type: Report from Study
  Country: US (occurrence: US)
  Receive Date: 20191118
  Receipt Date: 20200910
  Transmission Date: 20201102
  Serious: Yes (Other)
  Sender: FDA-Public Use
  Company Number: NVSC2019US038514

PATIENT
  Sex: Female
  Weight: 53.6 kg

DRUGS (8)
  1. TOBRAMYCIN. [Suspect]
     Active Substance: TOBRAMYCIN
     Indication: CYSTIC FIBROSIS
  2. PROAIR HFA [Concomitant]
     Active Substance: ALBUTEROL SULFATE
     Indication: LIVER DISORDER
     Dosage: 2 PUFFS NHX9H
     Route: 065
  3. TEZACAFTOR [Concomitant]
     Active Substance: TEZACAFTOR
     Indication: CFTR GENE MUTATION
     Dosage: 2 DF, BID (AM AND HS)
     Route: 065
     Dates: start: 20180606
  4. ALENDRONATE [Concomitant]
     Active Substance: ALENDRONATE SODIUM
     Indication: BONE DENSITY DECREASED
     Dosage: 1 DOSAGE FORM, QW (10 MG)
     Route: 048
     Dates: start: 20140609
  5. TOBRAMYCIN. [Suspect]
     Active Substance: TOBRAMYCIN
     Indication: INFECTIVE PULMONARY EXACERBATION OF CYSTIC FIBROSIS
     Dosage: 112 MG, BID
     Route: 055
     Dates: start: 20190817, end: 20190820
  6. ALBUTEROL. [Concomitant]
     Active Substance: ALBUTEROL
     Indication: LIVER DISORDER
     Dosage: 3 ML, Q6H
     Route: 065
     Dates: start: 20151015
  7. SYMBICORT [Concomitant]
     Active Substance: BUDESONIDE\FORMOTEROL FUMARATE DIHYDRATE
     Indication: LIVER DISORDER
     Dosage: 2 PUFFS, BID
     Route: 065
     Dates: start: 20100630
  8. PULMOZYME [Concomitant]
     Active Substance: DORNASE ALFA
     Indication: LIVER DISORDER
     Dosage: 2.5 MILLILITER, QD, INH
     Route: 065
     Dates: start: 20070412

REACTIONS (2)
  - Drug ineffective [Recovering/Resolving]
  - Cough [Recovering/Resolving]
